FAERS Safety Report 6587593-3 (Version None)
Quarter: 2010Q1

REPORT INFORMATION
  Report Type: 
  Country: None (occurrence: None)
  Receive Date: 20100218
  Receipt Date: 20100213
  Transmission Date: 20100710
  Serious: Yes (Other)
  Sender: FDA-Public Use
  Company Number: US-RB-002809-10

PATIENT
  Sex: Female

DRUGS (1)
  1. DELSYM [Suspect]
     Route: 048

REACTIONS (2)
  - MYDRIASIS [None]
  - PSYCHOMOTOR HYPERACTIVITY [None]
